FAERS Safety Report 6435473-6 (Version None)
Quarter: 2009Q4

REPORT INFORMATION
  Report Type: 
  Country: None (occurrence: None)
  Receive Date: 20091110
  Receipt Date: 20091029
  Transmission Date: 20100525
  Serious: Yes (Death, Hospitalization)
  Sender: FDA-Public Use
  Company Number: BR-ELI_LILLY_AND_COMPANY-BR200910007840

PATIENT
  Sex: Female

DRUGS (6)
  1. FORTEO [Suspect]
     Indication: OSTEOPOROSIS
     Dosage: 20 UG, 2/D
     Route: 065
     Dates: start: 20090701, end: 20090923
  2. NEXIUM [Concomitant]
     Dosage: UNK, UNKNOWN
     Route: 065
  3. ATENOLOL [Concomitant]
     Dosage: UNK, UNKNOWN
     Route: 065
  4. COMBIRON B 12 [Concomitant]
     Dosage: UNK, UNKNOWN
     Route: 065
  5. CALCIUM PHOSPHATE W/COLECALCIFEROL [Concomitant]
     Dosage: UNK, UNKNOWN
     Route: 065
  6. CORTICOSTEROID NOS [Concomitant]
     Dosage: UNK, UNKNOWN
     Route: 065

REACTIONS (4)
  - DEATH [None]
  - DEPRESSED MOOD [None]
  - PNEUMONIA [None]
  - PYREXIA [None]
